FAERS Safety Report 9191583 (Version 3)
Quarter: 2013Q2

REPORT INFORMATION
  Report Type: Spontaneous
  Country: SE (occurrence: SE)
  Receive Date: 20130326
  Receipt Date: 20130521
  Transmission Date: 20140414
  Serious: Yes (Disabling, Other)
  Sender: FDA-Public Use
  Company Number: SE-PFIZER INC-2013066495

PATIENT
  Age: 43 Year
  Sex: Female

DRUGS (13)
  1. CHAMPIX [Suspect]
     Indication: SMOKING CESSATION THERAPY
     Dosage: UNK
     Route: 048
     Dates: start: 20130118, end: 2013
  2. CHAMPIX [Suspect]
     Dosage: 1 MG, 2X/DAY
     Route: 048
     Dates: start: 2013, end: 201302
  3. CHAMPIX [Suspect]
     Dosage: 0.5 MG, UNK
     Route: 048
     Dates: start: 20130222, end: 201302
  4. CHAMPIX [Suspect]
     Dosage: 1 MG, 2X/DAY
     Route: 048
     Dates: start: 201302, end: 20130228
  5. LYRICA [Concomitant]
     Indication: INTERVERTEBRAL DISC PROTRUSION
     Dosage: UNK
  6. LYRICA [Concomitant]
     Indication: PAIN
  7. OXYCONTIN [Concomitant]
     Indication: INTERVERTEBRAL DISC PROTRUSION
     Dosage: UNK
  8. OXYCONTIN [Concomitant]
     Indication: PAIN
  9. OXYNORM [Concomitant]
     Indication: INTERVERTEBRAL DISC PROTRUSION
     Dosage: UNK
  10. OXYNORM [Concomitant]
     Indication: PAIN
  11. PANODIL [Concomitant]
     Dosage: UNK
  12. DUROFERON [Concomitant]
     Dosage: UNK
  13. DICLOFENAC [Concomitant]
     Dosage: UNK

REACTIONS (8)
  - Visual field defect [Recovered/Resolved]
  - Visual acuity reduced [Unknown]
  - Eye disorder [Unknown]
  - Abdominal pain upper [Recovered/Resolved]
  - Photophobia [Not Recovered/Not Resolved]
  - Accommodation disorder [Not Recovered/Not Resolved]
  - Headache [Not Recovered/Not Resolved]
  - Asthenopia [Unknown]
